FAERS Safety Report 5194199-X (Version None)
Quarter: 2006Q4

REPORT INFORMATION
  Report Type: 
  Country: None (occurrence: None)
  Receive Date: 20061228
  Receipt Date: 20061221
  Transmission Date: 20070319
  Serious: Yes (Other)
  Sender: FDA-Public Use
  Company Number: 2006UW28421

PATIENT
  Age: 88 Year
  Sex: Female
  Weight: 52.3 kg

DRUGS (3)
  1. SEROQUEL [Suspect]
     Indication: DEMENTIA
     Route: 048
     Dates: start: 20050101, end: 20061214
  2. ARICEPT [Concomitant]
  3. NAMENDA [Concomitant]

REACTIONS (6)
  - AKINESIA [None]
  - ANOREXIA [None]
  - DRUG HYPERSENSITIVITY [None]
  - HALLUCINATION [None]
  - INCONTINENCE [None]
  - UNRESPONSIVE TO STIMULI [None]
